FAERS Safety Report 23287164 (Version 1)
Quarter: 2023Q4

REPORT INFORMATION
  Report Type: Spontaneous
  Country: DE (occurrence: DE)
  Receive Date: 20231212
  Receipt Date: 20231212
  Transmission Date: 20240109
  Serious: Yes (Other)
  Sender: FDA-Public Use
  Company Number: DE-002147023-NVSC2021DE244148

PATIENT
  Sex: Female

DRUGS (8)
  1. DENOSUMAB [Suspect]
     Active Substance: DENOSUMAB
     Indication: Metastases to bone
     Dosage: 120 MG, Q4W
     Route: 058
     Dates: start: 20190227, end: 20201209
  2. FULVESTRANT [Suspect]
     Active Substance: FULVESTRANT
     Indication: Breast cancer metastatic
     Dosage: 500 MG, Q4W (DAILY DOSE)
     Route: 030
     Dates: start: 20190227
  3. CLODRONIC ACID [Suspect]
     Active Substance: CLODRONIC ACID
     Indication: Product used for unknown indication
     Dosage: 1 DOSAGE FORM, BID (1 X 520 BID)
     Route: 048
     Dates: start: 202111, end: 20220727
  4. RIBOCICLIB [Suspect]
     Active Substance: RIBOCICLIB
     Dosage: 200 MG, QD (SCHEMA 21 DAYS INTAKE, THEN 7 DAYS PAUSE)
     Route: 048
     Dates: start: 20200827, end: 20201111
  5. RIBOCICLIB [Suspect]
     Active Substance: RIBOCICLIB
     Dosage: 200 MG, QD (SCHEMA 21 DAYS INTAKE, THEN 7 DAYS PAUSE)
     Route: 048
     Dates: start: 20210113, end: 20210407
  6. RIBOCICLIB [Suspect]
     Active Substance: RIBOCICLIB
     Dosage: 200 MG, QD (SCHEMA 21 DAYS INTAKE, THEN 7 DAYS PAUSE)
     Route: 048
     Dates: start: 20210415, end: 20220907
  7. RIBOCICLIB [Suspect]
     Active Substance: RIBOCICLIB
     Dosage: 200 MG, QD (SCHEMA 21 DAYS INTAKE, THEN 7 DAYS PAUSE)
     Route: 048
     Dates: start: 20220913
  8. RIBOCICLIB [Suspect]
     Active Substance: RIBOCICLIB
     Indication: Breast cancer metastatic
     Dosage: 600 MG, QD (SCHEMA 21 DAYS INTAKE, THEN 7 DAYS PAUSE)
     Route: 048
     Dates: start: 20190227, end: 20200715

REACTIONS (2)
  - Osteonecrosis of jaw [Recovered/Resolved with Sequelae]
  - Osteonecrosis of jaw [Recovered/Resolved with Sequelae]

NARRATIVE: CASE EVENT DATE: 20201111
